FAERS Safety Report 6038733-6 (Version None)
Quarter: 2009Q1

REPORT INFORMATION
  Report Type: 
  Country: None (occurrence: None)
  Receive Date: 20090114
  Receipt Date: 20090114
  Transmission Date: 20090719
  Serious: Yes (Death, Other)
  Sender: FDA-Public Use
  Company Number: None

PATIENT
  Sex: Male
  Weight: 68 kg

DRUGS (5)
  1. RITUXIMAB [Suspect]
     Indication: NON-HODGKIN'S LYMPHOMA
     Dosage: 375 MG/M2 5 TIMES IVPB
     Dates: start: 20071023, end: 20071211
  2. FLUDARABINE PHOSPHATE [Concomitant]
  3. CYCLOPHOSPHAMIDE [Concomitant]
  4. CYCLOSPORINE [Concomitant]
  5. MYCOPHENOLATE MOFETIL [Concomitant]

REACTIONS (20)
  - ACUTE GRAFT VERSUS HOST DISEASE IN INTESTINE [None]
  - ANAEMIA [None]
  - ATRIAL FIBRILLATION [None]
  - ATRIAL FLUTTER [None]
  - BK VIRUS INFECTION [None]
  - BONE MARROW FAILURE [None]
  - CARDIAC FAILURE [None]
  - CYTOMEGALOVIRUS INFECTION [None]
  - EPISTAXIS [None]
  - HEPATIC FAILURE [None]
  - MULTI-ORGAN FAILURE [None]
  - MYOCARDITIS [None]
  - MYOPATHY [None]
  - PNEUMONIA [None]
  - POST PROCEDURAL COMPLICATION [None]
  - RENAL FAILURE [None]
  - RESPIRATORY FAILURE [None]
  - SEPSIS [None]
  - SUPRAVENTRICULAR EXTRASYSTOLES [None]
  - THROMBOTIC THROMBOCYTOPENIC PURPURA [None]
